FAERS Safety Report 14811500 (Version 2)
Quarter: 2018Q3

REPORT INFORMATION
  Report Type: Report from Study
  Country: US (occurrence: US)
  Receive Date: 20180425
  Receipt Date: 20180719
  Transmission Date: 20181010
  Serious: No
  Sender: FDA-Public Use
  Company Number: US-AMGEN-USASL2018031523

PATIENT
  Age: 66 Year
  Sex: Male
  Weight: 86.7 kg

DRUGS (2)
  1. REPATHA [Suspect]
     Active Substance: EVOLOCUMAB
     Indication: BLOOD CHOLESTEROL INCREASED
  2. REPATHA [Suspect]
     Active Substance: EVOLOCUMAB
     Indication: HYPERCHOLESTEROLAEMIA
     Dosage: 140 MG, Q2WK
     Route: 065
     Dates: start: 201710, end: 20180222

REACTIONS (8)
  - Influenza [Unknown]
  - Gait inability [Recovering/Resolving]
  - Exercise tolerance decreased [Recovering/Resolving]
  - Myalgia [Recovering/Resolving]
  - Nasopharyngitis [Unknown]
  - Muscle spasms [Recovering/Resolving]
  - Weight increased [Unknown]
  - Joint range of motion decreased [Recovering/Resolving]

NARRATIVE: CASE EVENT DATE: 2018
